FAERS Safety Report 6395508-6 (Version None)
Quarter: 2009Q4

REPORT INFORMATION
  Report Type: 
  Country: None (occurrence: None)
  Receive Date: 20091009
  Receipt Date: 20090930
  Transmission Date: 20100525
  Serious: Yes (Hospitalization)
  Sender: FDA-Public Use
  Company Number: BR-ASTRAZENECA-2009SE17597

PATIENT
  Age: 4 Month
  Sex: Female
  Weight: 4.7 kg

DRUGS (3)
  1. PULMICORT [Suspect]
     Indication: BRONCHIOLITIS
     Dosage: 0.25 MG/ML, TWICE DAILY
     Route: 055
     Dates: start: 20090501
  2. MOTILIUM [Concomitant]
     Indication: GASTROOESOPHAGEAL REFLUX DISEASE
     Route: 048
  3. LABEL [Concomitant]
     Indication: GASTROOESOPHAGEAL REFLUX DISEASE
     Route: 048

REACTIONS (2)
  - DRUG DOSE OMISSION [None]
  - DYSPNOEA [None]
